FAERS Safety Report 23854058 (Version 2)
Quarter: 2024Q2

REPORT INFORMATION
  Report Type: Spontaneous
  Country: US (occurrence: US)
  Receive Date: 20240514
  Receipt Date: 20240606
  Transmission Date: 20240716
  Serious: Yes (Death)
  Sender: FDA-Public Use
  Company Number: US-INTRA-CELLULAR THERAPIES, INC.-2024ICT00720

PATIENT
  Age: 40 Year
  Sex: Female

DRUGS (10)
  1. CAPLYTA [Suspect]
     Active Substance: LUMATEPERONE
     Indication: Bipolar II disorder
     Dosage: 42 MG
  2. UNSPECIFIED INGREDIENT [Concomitant]
     Active Substance: UNSPECIFIED INGREDIENT
  3. DIAZEPAM [Concomitant]
     Active Substance: DIAZEPAM
  4. SPRAVATO [Concomitant]
     Active Substance: ESKETAMINE
  5. GABAPENTIN [Concomitant]
     Active Substance: GABAPENTIN
  6. LAMICTAL [Concomitant]
     Active Substance: LAMOTRIGINE
  7. LINZESS [Concomitant]
     Active Substance: LINACLOTIDE
  8. NUCYNTA [Concomitant]
     Active Substance: TAPENTADOL HYDROCHLORIDE
     Indication: Pain
  9. ALBUTEROL SULFATE [Concomitant]
     Active Substance: ALBUTEROL SULFATE
  10. BACLOFEN [Concomitant]
     Active Substance: BACLOFEN

REACTIONS (1)
  - Death [Fatal]
